FAERS Safety Report 16920848 (Version 1)
Quarter: 2019Q4

REPORT INFORMATION
  Report Type: Spontaneous
  Country: CA (occurrence: CA)
  Receive Date: 20191015
  Receipt Date: 20191015
  Transmission Date: 20200122
  Serious: Yes (Other)
  Sender: FDA-Public Use
  Company Number: CA-TEVA-2019-CA-1122213

PATIENT
  Age: 79 Year
  Sex: Female

DRUGS (8)
  1. CIPRALEX [Concomitant]
     Active Substance: ESCITALOPRAM OXALATE
  2. VAGIFEM [Concomitant]
     Active Substance: ESTRADIOL
  3. SILDENAFIL CITRATE. [Suspect]
     Active Substance: SILDENAFIL CITRATE
     Indication: PULMONARY ARTERIAL HYPERTENSION
     Route: 048
  4. ACETYLSALICYLIC ACID [Concomitant]
     Active Substance: ASPIRIN
  5. OXYGEN. [Concomitant]
     Active Substance: OXYGEN
  6. COVERSYL [PERINDOPRIL ARGININE] [Concomitant]
     Active Substance: PERINDOPRIL ARGININE
  7. SYNTHROID [Concomitant]
     Active Substance: LEVOTHYROXINE SODIUM
  8. LORAZEPAM. [Concomitant]
     Active Substance: LORAZEPAM

REACTIONS (8)
  - Oxygen saturation decreased [Unknown]
  - Respiratory rate increased [Unknown]
  - Dyspnoea exertional [Unknown]
  - Arthralgia [Unknown]
  - Condition aggravated [Unknown]
  - Pain in extremity [Unknown]
  - Cardiac disorder [Unknown]
  - Sleep deficit [Unknown]
